FAERS Safety Report 4939326-1 (Version None)
Quarter: 2006Q1

REPORT INFORMATION
  Report Type: 
  Country: None (occurrence: None)
  Receive Date: 20060306
  Receipt Date: 20060217
  Transmission Date: 20060701
  Serious: Yes (Hospitalization)
  Sender: FDA-Public Use
  Company Number: CIP06000385

PATIENT
  Age: 81 Year
  Sex: Female

DRUGS (8)
  1. ACTONEL (RISEDRONATE SODIUM) 2.5 MG [Suspect]
     Indication: OSTEOPOROSIS
     Dosage: 2.5 MG DAILY, ORAL
     Route: 048
     Dates: start: 20020101
  2. CLINORIL [Suspect]
     Indication: PAIN
     Dosage: 300 MG UNKNOWN, ORAL
     Route: 048
     Dates: start: 20020101
  3. CLINORIL [Suspect]
     Indication: PAIN
     Dosage: 300 MG UNKNOWN, ORAL
     Route: 048
     Dates: start: 20060201
  4. SOLON (SOFALCONE) [Concomitant]
  5. ALFAROL(ALFACALCIDOL) [Concomitant]
  6. ASPARA (MAGNESIUM ASPARTATE, ASPARTATE POTASSIUM) [Concomitant]
  7. IDOMETHINE (INDOMETACIN) [Concomitant]
  8. TOPICAL PRODUCTS FOR JOINT AND MUSCULAR PAIN [Concomitant]

REACTIONS (12)
  - ABDOMINAL PAIN [None]
  - ARTHRALGIA [None]
  - BACK INJURY [None]
  - BACK PAIN [None]
  - C-REACTIVE PROTEIN INCREASED [None]
  - FALL [None]
  - GASTROINTESTINAL HAEMORRHAGE [None]
  - HAND FRACTURE [None]
  - PAIN IN EXTREMITY [None]
  - RENAL FAILURE [None]
  - STRESS [None]
  - WHITE BLOOD CELL COUNT INCREASED [None]
